FAERS Safety Report 20752125 (Version 1)
Quarter: 2022Q2

REPORT INFORMATION
  Report Type: Report from Study
  Country: CA (occurrence: CA)
  Receive Date: 20220426
  Receipt Date: 20220426
  Transmission Date: 20220721
  Serious: Yes (Other)
  Sender: FDA-Public Use
  Company Number: CA-JNJFOC-20210737055

PATIENT
  Age: 43 Year
  Sex: Female
  Weight: 64.5 kg

DRUGS (2)
  1. REMICADE [Suspect]
     Active Substance: INFLIXIMAB
     Indication: Colitis ulcerative
     Route: 042
     Dates: start: 20190409
  2. REMICADE [Suspect]
     Active Substance: INFLIXIMAB
     Dosage: DOSE IS ROUNDED
     Route: 042
     Dates: start: 201911

REACTIONS (5)
  - Sinus polyp [Recovering/Resolving]
  - Sinus disorder [Unknown]
  - COVID-19 [Recovered/Resolved]
  - Off label use [Unknown]
  - Incorrect dose administered [Unknown]

NARRATIVE: CASE EVENT DATE: 20220319
